FAERS Safety Report 18054748 (Version 1)
Quarter: 2020Q3

REPORT INFORMATION
  Report Type: Spontaneous
  Country: DK (occurrence: DK)
  Receive Date: 20200722
  Receipt Date: 20200722
  Transmission Date: 20201103
  Serious: Yes (Hospitalization)
  Sender: FDA-Public Use
  Company Number: DK-PFIZER INC-2020274489

PATIENT
  Age: 69 Year
  Sex: Female

DRUGS (11)
  1. LINEZOLID. [Suspect]
     Active Substance: LINEZOLID
     Indication: ENDOCARDITIS
     Dosage: 600 MG, 2X/DAY
     Route: 048
     Dates: start: 20200515, end: 20200522
  2. FUROSEMIDE. [Concomitant]
     Active Substance: FUROSEMIDE
     Indication: DIURETIC THERAPY
     Dosage: 160 MG, 1X/DAY
     Route: 048
     Dates: start: 20200513
  3. VIBEDEN [Concomitant]
     Indication: VITAMIN B12 DEFICIENCY
     Dosage: 1 ML, EVERY 3 MONTHS
     Route: 030
     Dates: start: 20200212
  4. POTASSIUM CHLORIDE. [Concomitant]
     Active Substance: POTASSIUM CHLORIDE
     Indication: MINERAL SUPPLEMENTATION
     Dosage: VARIATION IN FORM. STRENGTH: 75MG/ML AND 750MG. DOSE: VARIATION.
     Route: 048
     Dates: start: 20191207
  5. CALCIUM + VITAMIN D [CALCIUM CARBONATE;COLECALCIFEROL] [Concomitant]
     Active Substance: CALCIUM CARBONATE\CHOLECALCIFEROL
     Indication: MINERAL SUPPLEMENTATION
     Dosage: 2 DF, 1X/DAY
     Route: 048
     Dates: start: 20200129
  6. AMOXICILLIN. [Concomitant]
     Active Substance: AMOXICILLIN
     Indication: ENDOCARDITIS
     Dosage: 3000 MG, 1X/DAY
     Route: 048
     Dates: start: 20200515, end: 20200612
  7. FERROUS FUMARATE [Concomitant]
     Active Substance: FERROUS FUMARATE
     Indication: MINERAL SUPPLEMENTATION
     Dosage: STRENGTH: 100+60 MG
     Route: 048
     Dates: start: 20200130
  8. PANTOPRAZOLE [Concomitant]
     Active Substance: PANTOPRAZOLE
     Indication: PROPHYLAXIS AGAINST GASTROINTESTINAL ULCER
     Dosage: 80 MG, 1X/DAY
     Route: 048
     Dates: start: 20191203
  9. ZINK [ZINC SULFATE] [Concomitant]
     Indication: MINERAL SUPPLEMENTATION
     Dosage: 22 MG, 1X/DAY
     Route: 048
     Dates: start: 20200507
  10. LINEZOLID. [Suspect]
     Active Substance: LINEZOLID
     Dosage: 600 MG IN THE MORNING, 300 MG IN THE EVENING
     Route: 048
     Dates: start: 20200523, end: 20200612
  11. CREON [Concomitant]
     Active Substance: PANCRELIPASE AMYLASE\PANCRELIPASE LIPASE\PANCRELIPASE PROTEASE
     Indication: STEATORRHOEA
     Dosage: STRENGTH: LIPASE 40.000 EP?E, LIPASE 25.000 EP?E. DOSE: 40 3XDAILY + 25 AS NEEDED MAX 4XDAILY
     Route: 048
     Dates: start: 20200131

REACTIONS (2)
  - Pancytopenia [Recovering/Resolving]
  - Discomfort [Recovering/Resolving]

NARRATIVE: CASE EVENT DATE: 202006
